FAERS Safety Report 6270242-1 (Version None)
Quarter: 2009Q3

REPORT INFORMATION
  Report Type: 
  Country: None (occurrence: None)
  Receive Date: 20090716
  Receipt Date: 20090701
  Transmission Date: 20100115
  Serious: No
  Sender: FDA-Public Use
  Company Number: US-BAYER-200840165NA

PATIENT
  Age: 65 Year
  Sex: Male

DRUGS (3)
  1. MAGNEVIST [Suspect]
     Indication: LUMBAR RADICULOPATHY
     Dosage: TOTAL DAILY DOSE: 15 ML  UNIT DOSE: 15 ML
     Route: 042
     Dates: start: 20081205, end: 20081205
  2. LORTAB [Concomitant]
  3. LYRICA [Concomitant]

REACTIONS (1)
  - VOMITING [None]
